FAERS Safety Report 7456988-8 (Version None)
Quarter: 2011Q2

REPORT INFORMATION
  Report Type: 
  Country: None (occurrence: None)
  Receive Date: 20110504
  Receipt Date: 20110113
  Transmission Date: 20111010
  Serious: Yes (Hospitalization, Other)
  Sender: FDA-Public Use
  Company Number: US-BAYER-201042129NA

PATIENT
  Age: 31 Year
  Sex: Female
  Weight: 58.957 kg

DRUGS (3)
  1. YASMIN [Suspect]
     Indication: PRODUCT USED FOR UNKNOWN INDICATION
     Dosage: UNK
     Route: 048
     Dates: start: 20050201, end: 20050515
  2. COUMADIN [Concomitant]
     Dosage: UNK
     Dates: end: 20050707
  3. COUMADIN [Concomitant]
     Dosage: UNK
     Dates: start: 20090205

REACTIONS (6)
  - PULMONARY EMBOLISM [None]
  - UTERINE HAEMORRHAGE [None]
  - UTERINE LEIOMYOMA [None]
  - PELVIC VENOUS THROMBOSIS [None]
  - UTERINE LEIOMYOSARCOMA [None]
  - DEEP VEIN THROMBOSIS [None]
